FAERS Safety Report 4995906-9 (Version None)
Quarter: 2006Q2

REPORT INFORMATION
  Report Type: 
  Country: None (occurrence: None)
  Receive Date: 20060508
  Receipt Date: 20060418
  Transmission Date: 20061013
  Serious: Yes (Hospitalization)
  Sender: FDA-Public Use
  Company Number: GB-MERCK-0604GBR00098

PATIENT
  Sex: Female
  Weight: 70 kg

DRUGS (5)
  1. SINGULAIR [Suspect]
     Route: 048
     Dates: start: 20051230, end: 20060202
  2. BUDESONIDE AND FORMOTEROL FUMARATE [Concomitant]
     Indication: ASTHMA
     Route: 055
  3. LANSOPRAZOLE [Concomitant]
     Route: 048
  4. ENALAPRIL MALEATE [Concomitant]
     Indication: HYPERTENSION
     Route: 048
  5. TERBUTALINE SULFATE [Concomitant]
     Indication: ASTHMA
     Route: 055

REACTIONS (11)
  - ALANINE AMINOTRANSFERASE INCREASED [None]
  - ASTHENIA [None]
  - ASTHMA [None]
  - BLOOD ALKALINE PHOSPHATASE INCREASED [None]
  - FATIGUE [None]
  - GAMMA-GLUTAMYLTRANSFERASE INCREASED [None]
  - JAUNDICE [None]
  - MALAISE [None]
  - NAUSEA [None]
  - PEAK EXPIRATORY FLOW RATE DECREASED [None]
  - PRURITUS [None]
